FAERS Safety Report 13687095 (Version 1)
Quarter: 2017Q2

REPORT INFORMATION
  Report Type: Spontaneous
  Country: TW (occurrence: TW)
  Receive Date: 20170623
  Receipt Date: 20170623
  Transmission Date: 20170830
  Serious: Yes (Death, Hospitalization, Other)
  Sender: FDA-Public Use
  Company Number: TW-ACTELION-A-CH2017-155379

PATIENT
  Age: 71 Year
  Sex: Female

DRUGS (2)
  1. TRACLEER [Suspect]
     Active Substance: BOSENTAN
     Indication: PULMONARY ARTERIAL HYPERTENSION
     Dosage: 125 MG, BID
     Route: 048
     Dates: start: 2007, end: 201705
  2. REVATIO [Concomitant]
     Active Substance: SILDENAFIL CITRATE
     Indication: PULMONARY ARTERIAL HYPERTENSION
     Dosage: UNK
     Dates: start: 2007, end: 201705

REACTIONS (24)
  - Productive cough [Fatal]
  - Oedema peripheral [Unknown]
  - Pleural effusion [Unknown]
  - Acute kidney injury [Unknown]
  - Dialysis [Unknown]
  - Body temperature increased [Fatal]
  - Condition aggravated [Unknown]
  - Cardiac failure [Unknown]
  - Dyspnoea exertional [Unknown]
  - Acidosis [Unknown]
  - Fluid overload [Unknown]
  - Blood creatinine increased [Unknown]
  - Breath sounds abnormal [Fatal]
  - Respiratory failure [Unknown]
  - Wheezing [Fatal]
  - Oxygen saturation decreased [Unknown]
  - Generalised oedema [Unknown]
  - Bradycardia [Unknown]
  - Bradypnoea [Unknown]
  - Hypotension [Unknown]
  - Pneumonia [Fatal]
  - Sputum discoloured [Fatal]
  - Dyspnoea [Unknown]
  - Ascites [Unknown]

NARRATIVE: CASE EVENT DATE: 201705
